FAERS Safety Report 20863890 (Version 1)
Quarter: 2022Q2

REPORT INFORMATION
  Report Type: Report from Study
  Country: UA (occurrence: UA)
  Receive Date: 20220523
  Receipt Date: 20220523
  Transmission Date: 20220720
  Serious: Yes (Hospitalization)
  Sender: FDA-Public Use
  Company Number: UA-JNJFOC-20220534369

PATIENT
  Age: 51 Year
  Sex: Female
  Weight: 75 kg

DRUGS (12)
  1. AMIVANTAMAB [Suspect]
     Active Substance: AMIVANTAMAB
     Indication: Non-small cell lung cancer metastatic
     Dosage: MOST RECENT DOSE ON 04/MAY/2022
     Route: 042
     Dates: start: 20211220
  2. METHOTREXATE [Concomitant]
     Active Substance: METHOTREXATE
     Indication: Rheumatoid arthritis
     Route: 048
     Dates: start: 20201208
  3. FOLIC ACID [Concomitant]
     Active Substance: FOLIC ACID
     Indication: Rheumatoid arthritis
     Route: 048
     Dates: start: 20201208
  4. CALCEMIN SILVER [Concomitant]
     Active Substance: BORON\MAGNESIUM OXIDE\ZINC OXIDE
     Indication: Rheumatoid arthritis
     Route: 048
     Dates: start: 20201208
  5. CHLORHEXIDINE [Concomitant]
     Active Substance: CHLORHEXIDINE
     Indication: Skin ulcer
     Dosage: DOSAGE 1 UNSPECIFIED UNIT
     Route: 061
     Dates: start: 20220113
  6. METHYLPREDNISOLONE [Concomitant]
     Active Substance: METHYLPREDNISOLONE
     Indication: Rheumatoid arthritis
     Route: 048
     Dates: start: 20220127
  7. ASCOZIN [Concomitant]
     Route: 048
     Dates: start: 20220228
  8. EUCALYPTUS GLOBULUS LEAF [Concomitant]
     Active Substance: EUCALYPTUS GLOBULUS LEAF
     Dosage: DOSAGE 1 UNSPECIFIED UNIT
     Route: 061
     Dates: start: 20220302
  9. BETAMETAZONA FITERMAN [Concomitant]
     Indication: Paronychia
     Route: 061
     Dates: start: 20220425
  10. BETAMETAZONA FITERMAN [Concomitant]
     Indication: Paronychia
  11. XARELTO [Concomitant]
     Active Substance: RIVAROXABAN
     Indication: Vascular access complication
     Route: 048
     Dates: start: 20220405
  12. XARELTO [Concomitant]
     Active Substance: RIVAROXABAN
     Indication: Jugular vein thrombosis

REACTIONS (1)
  - Jugular vein thrombosis [Recovered/Resolved]

NARRATIVE: CASE EVENT DATE: 20220516
